FAERS Safety Report 16381236 (Version 2)
Quarter: 2019Q2

REPORT INFORMATION
  Report Type: Spontaneous
  Country: DE (occurrence: DE)
  Receive Date: 20190603
  Receipt Date: 20190627
  Transmission Date: 20190711
  Serious: Yes (Other)
  Sender: FDA-Public Use
  Company Number: DE-SUN PHARMACEUTICAL INDUSTRIES LTD-2019RR-209306

PATIENT
  Age: 56 Year
  Sex: Female
  Weight: 67 kg

DRUGS (1)
  1. IBUPROFEN. [Suspect]
     Active Substance: IBUPROFEN
     Indication: PLANTAR FASCIITIS
     Dosage: 2 MAL 600MG/D
     Route: 048
     Dates: start: 20190502, end: 20190507

REACTIONS (4)
  - Depression [Recovering/Resolving]
  - Adverse reaction [Recovering/Resolving]
  - Depressed mood [Recovered/Resolved]
  - Apathy [Recovering/Resolving]

NARRATIVE: CASE EVENT DATE: 201905
